FAERS Safety Report 6382549-8 (Version None)
Quarter: 2009Q3

REPORT INFORMATION
  Report Type: 
  Country: None (occurrence: None)
  Receive Date: 20090930
  Receipt Date: 20090924
  Transmission Date: 20100115
  Serious: Yes (Hospitalization)
  Sender: FDA-Public Use
  Company Number: A0808852A

PATIENT
  Age: 15 Month
  Sex: Male

DRUGS (7)
  1. VENTOLIN [Suspect]
     Indication: DRUG USE FOR UNKNOWN INDICATION
     Route: 055
     Dates: start: 20090626, end: 20090731
  2. ATROVENT [Concomitant]
  3. BETHANECHOL [Concomitant]
  4. MORPHINE [Concomitant]
  5. VALIUM [Concomitant]
  6. CALCIUM [Concomitant]
  7. ZANTAC [Concomitant]

REACTIONS (2)
  - HYPERSENSITIVITY [None]
  - OBSTRUCTIVE AIRWAYS DISORDER [None]
